FAERS Safety Report 7875254-X (Version None)
Quarter: 2011Q4

REPORT INFORMATION
  Report Type: 
  Country: None (occurrence: None)
  Receive Date: 20111031
  Receipt Date: 20111025
  Transmission Date: 20120403
  Serious: Yes (Other)
  Sender: FDA-Public Use
  Company Number: JP-PFIZER INC-2011258454

PATIENT
  Age: 45 Year
  Sex: Female

DRUGS (2)
  1. MEDROXYPROGESTERONE ACETATE [Suspect]
     Indication: ENDOMETRIAL CANCER
     Dosage: 200 MG, 2X/DAY
     Route: 048
     Dates: start: 20071101, end: 20110601
  2. ZITHROMAX [Suspect]
     Indication: ENDOMETRIAL CANCER
     Route: 048

REACTIONS (4)
  - HEPATIC STEATOSIS [None]
  - HEPATIC FUNCTION ABNORMAL [None]
  - BLOOD CHOLESTEROL INCREASED [None]
  - DIABETES MELLITUS [None]
